FAERS Safety Report 21499816 (Version 2)
Quarter: 2022Q4

REPORT INFORMATION
  Report Type: Spontaneous
  Country: US (occurrence: US)
  Receive Date: 20221024
  Receipt Date: 20221101
  Transmission Date: 20230113
  Serious: No
  Sender: FDA-Public Use
  Company Number: US-PFIZER INC-202201248745

PATIENT
  Age: 57 Year
  Sex: Male
  Weight: 77.11 kg

DRUGS (2)
  1. PAXLOVID [Suspect]
     Active Substance: NIRMATRELVIR\RITONAVIR
     Indication: Eczema
     Dosage: [PF-07321332 150 MG]/[RITONAVIR 100 MG]; 2X/DAY;
     Dates: start: 20220701
  2. AMOXICILLIN [Suspect]
     Active Substance: AMOXICILLIN
     Indication: Eczema
     Dosage: 875 MG, 3X/DAY, (TAKES 875MG 3 TIMES A DAY OF AMOXICILLIN)

REACTIONS (2)
  - Off label use [Unknown]
  - Drug ineffective for unapproved indication [Unknown]
